FAERS Safety Report 9482719 (Version 2)
Quarter: 2013Q3

REPORT INFORMATION
  Report Type: Report from Study
  Country: US (occurrence: US)
  Receive Date: 20130828
  Receipt Date: 20130828
  Transmission Date: 20140515
  Serious: Yes (Hospitalization)
  Sender: FDA-Public Use
  Company Number: PHHO2009US07210

PATIENT
  Age: 67 Year
  Sex: Male
  Weight: 92.52 kg

DRUGS (16)
  1. ALISKIREN [Suspect]
     Indication: CARDIOVASCULAR DISORDER
     Route: 048
     Dates: start: 20080118, end: 20090609
  2. ALISKIREN [Suspect]
     Route: 048
     Dates: start: 20090611, end: 20110118
  3. ALISKIREN [Suspect]
     Route: 048
     Dates: start: 20110131, end: 20111002
  4. ALISKIREN [Suspect]
     Route: 048
     Dates: start: 20111118
  5. FUROSEMIDE, SPIRONOLACTONE [Suspect]
     Dosage: 80/25 MG DAILY
     Route: 048
  6. LISINOPRIL+HYDROCHLOROTHIAZIDE [Suspect]
     Indication: MYOCARDIAL INFARCTION
     Dosage: 20/25 MG DAILY
     Dates: start: 20101122, end: 20110117
  7. LISINOPRIL+HYDROCHLOROTHIAZIDE [Suspect]
     Indication: HYPERTENSION
     Dosage: 10/12.5 MG DAILY
     Route: 048
     Dates: start: 20110126
  8. LIPITOR [Concomitant]
     Indication: DYSLIPIDAEMIA
     Dosage: 80 MG, QD
     Route: 048
     Dates: start: 20110328
  9. LISINOPRIL [Concomitant]
     Indication: HYPERTENSION
     Dosage: 20 DF, QD
     Route: 048
     Dates: start: 20111108
  10. EFFIENT [Concomitant]
     Indication: PROPHYLAXIS
     Dosage: 10 MG, BID
     Route: 048
     Dates: start: 20110124, end: 20111002
  11. HYDROCHLOROTHIAZIDE [Concomitant]
     Indication: HYPERTENSION
     Dosage: 25 DF, QD
     Route: 048
     Dates: start: 20110308
  12. INSULIN GLARGINE [Concomitant]
     Indication: DIABETES MELLITUS
     Dosage: 20 DF, QAM
     Route: 058
     Dates: start: 20111017
  13. INSULIN GLARGINE [Concomitant]
     Dosage: 20 DF, QAM
     Route: 058
     Dates: start: 20111017
  14. FUROSEMIDE [Concomitant]
     Indication: CARDIAC FAILURE CONGESTIVE
     Dosage: 40 MG, BID
     Route: 048
     Dates: start: 20110707
  15. METOPROLOL [Concomitant]
     Indication: HYPERTENSION
     Dosage: 25 MG, BID
     Route: 048
     Dates: start: 20110419
  16. POTASSIUM CHLORATE [Concomitant]
     Indication: PROPHYLAXIS
     Dosage: 20 MG, BID
     Route: 048
     Dates: start: 20110708

REACTIONS (28)
  - Acute myocardial infarction [Recovered/Resolved]
  - Atrial fibrillation [Recovered/Resolved]
  - Hypotension [Recovered/Resolved]
  - Ventricular tachycardia [Recovered/Resolved]
  - Arrhythmia [Recovered/Resolved]
  - Heart rate abnormal [Recovered/Resolved]
  - Diastolic dysfunction [Recovered/Resolved]
  - Cardiac enzymes increased [Recovered/Resolved]
  - Coronary artery disease [Recovered/Resolved]
  - Hyperglycaemic hyperosmolar nonketotic syndrome [Recovered/Resolved]
  - Coronary artery restenosis [Recovered/Resolved]
  - Renal failure acute [Recovered/Resolved]
  - Atrial flutter [Recovered/Resolved]
  - Angina pectoris [Recovered/Resolved]
  - Myocardial ischaemia [Recovered/Resolved]
  - Dyspnoea [Recovered/Resolved]
  - Ejection fraction decreased [Recovered/Resolved]
  - Nausea [Recovered/Resolved]
  - Vomiting [Recovered/Resolved]
  - Diarrhoea [Recovered/Resolved]
  - Asthenia [Recovered/Resolved]
  - Ischaemic cardiomyopathy [Recovered/Resolved]
  - Hypovolaemia [Recovered/Resolved]
  - Skin necrosis [Unknown]
  - Anaemia [Recovering/Resolving]
  - Medical device complication [Recovered/Resolved]
  - Post procedural haematoma [Recovered/Resolved]
  - Wound infection staphylococcal [Not Recovered/Not Resolved]
